FAERS Safety Report 25898823 (Version 1)
Quarter: 2025Q4

REPORT INFORMATION
  Report Type: Spontaneous
  Country: US (occurrence: US)
  Receive Date: 20251009
  Receipt Date: 20251009
  Transmission Date: 20260118
  Serious: No
  Sender: NUVATION BIO
  Company Number: US-NUVATION BIO INC.-2025NUV000150

PATIENT

DRUGS (1)
  1. IBTROZI [Suspect]
     Active Substance: TALETRECTINIB ADIPATE
     Indication: Product used for unknown indication
     Dosage: UNK

REACTIONS (1)
  - Dysphagia [Unknown]
